FAERS Safety Report 17773414 (Version 1)
Quarter: 2020Q2

REPORT INFORMATION
  Report Type: Spontaneous
  Country: NL (occurrence: NL)
  Receive Date: 20200513
  Receipt Date: 20200513
  Transmission Date: 20200714
  Serious: Yes (Other)
  Sender: FDA-Public Use
  Company Number: NL-SUN PHARMACEUTICAL INDUSTRIES LTD-2020RR-246936

PATIENT
  Sex: Female
  Weight: 50 kg

DRUGS (3)
  1. PANTOPRAZOLPANTOPRAZOL TABLET MSR 40MG [Concomitant]
     Indication: PRODUCT USED FOR UNKNOWN INDICATION
     Dosage: MAAGSAPRESISTENTE TABLET, 40 MG (MILLIGRAM), UNK
     Route: 065
  2. VENLAFAXINE [Suspect]
     Active Substance: VENLAFAXINE HYDROCHLORIDE
     Indication: DEPRESSION
     Dosage: 1 DOSAGE FORM, DAILY
     Route: 065
     Dates: start: 200503
  3. CLOPIDOGRELCLOPIDOGREL TABLET   75MG [Concomitant]
     Indication: PRODUCT USED FOR UNKNOWN INDICATION
     Dosage: TABLET, 75 MG (MILLIGRAM), UNK
     Route: 065

REACTIONS (1)
  - Glaucoma [Not Recovered/Not Resolved]
